FAERS Safety Report 14587306 (Version 1)
Quarter: 2018Q1

REPORT INFORMATION
  Report Type: Spontaneous
  Country: US (occurrence: US)
  Receive Date: 20180228
  Receipt Date: 20180228
  Transmission Date: 20180509
  Serious: Yes (Other)
  Sender: FDA-Public Use
  Company Number: None

PATIENT
  Age: 31 Year
  Sex: Female
  Weight: 72.9 kg

DRUGS (4)
  1. DEXTROAMPHET SACCHARAT, AMPHET ASPARTATE, DEXTROAMPHET SULFATE AND AMPHET SULFAT [Suspect]
     Active Substance: AMPHETAMINE ASPARTATE\AMPHETAMINE SULFATE\DEXTROAMPHETAMINE SACCHARATE\DEXTROAMPHETAMINE SULFATE
     Indication: ATTENTION DEFICIT/HYPERACTIVITY DISORDER
     Dosage: ?          QUANTITY:1 TABLET(S);?
     Route: 048
     Dates: start: 20180122, end: 20180203
  2. MULTIVITAMINS [Concomitant]
     Active Substance: VITAMINS
  3. FISH OIL [Concomitant]
     Active Substance: FISH OIL
  4. CABERGOLINE. [Concomitant]
     Active Substance: CABERGOLINE

REACTIONS (9)
  - Confusional state [None]
  - Drug ineffective [None]
  - Substance use [None]
  - Asthenia [None]
  - Disturbance in attention [None]
  - Somnolence [None]
  - Heart rate increased [None]
  - Anger [None]
  - Impaired work ability [None]

NARRATIVE: CASE EVENT DATE: 20180129
